FAERS Safety Report 25926882 (Version 1)
Quarter: 2025Q4

REPORT INFORMATION
  Report Type: Spontaneous
  Country: US (occurrence: None)
  Receive Date: 20251015
  Receipt Date: 20251015
  Transmission Date: 20260118
  Serious: Yes (Hospitalization)
  Sender: FDA-CTU
  Company Number: None

PATIENT
  Sex: Male

DRUGS (11)
  1. LENALIDOMIDE [Suspect]
     Active Substance: LENALIDOMIDE
     Indication: Plasma cell myeloma
     Dosage: FREQUENCY : DAILY;?
     Route: 048
     Dates: start: 20250726
  2. ALBUTEROL AER HFA [Concomitant]
  3. ALLERGY UL TR TAB 25MG [Concomitant]
  4. AMLODIPINE [Concomitant]
     Active Substance: AMLODIPINE BESYLATE
  5. AMOXICILLIN [Concomitant]
     Active Substance: AMOXICILLIN
  6. BACTRIM TAB 400-80MG [Concomitant]
  7. BENZONATATE CAP 100MG [Concomitant]
  8. BREO ELLIPTA INH 100-25 [Concomitant]
  9. CALCIUM GARB TAB 1250MG [Concomitant]
  10. DARZALEX [Concomitant]
     Active Substance: DARATUMUMAB
  11. DEXAMETHASONE [Concomitant]
     Active Substance: DEXAMETHASONE

REACTIONS (2)
  - Urinary tract infection [None]
  - Mobility decreased [None]
